FAERS Safety Report 5918528-1 (Version None)
Quarter: 2008Q4

REPORT INFORMATION
  Report Type: 
  Country: None (occurrence: None)
  Receive Date: 20081014
  Receipt Date: 20081014
  Transmission Date: 20090506
  Serious: Yes (Hospitalization, Other)
  Sender: FDA-Public Use
  Company Number: None

PATIENT
  Sex: Female
  Weight: 47.6277 kg

DRUGS (2)
  1. MINOCYCLINE HCL [Suspect]
     Indication: ACNE
     Dosage: 50MG CAPSULE 2 TIMES A DAY PO
     Route: 048
  2. MINOCYCLINE HCL [Suspect]
     Indication: ACNE
     Dosage: 50 MG CAPSULE 1 TIME A DAY PO
     Route: 048

REACTIONS (15)
  - ABDOMINAL PAIN [None]
  - ANTINUCLEAR ANTIBODY POSITIVE [None]
  - ARTHRALGIA [None]
  - AUTOIMMUNE DISORDER [None]
  - DECREASED ACTIVITY [None]
  - DEHYDRATION [None]
  - FATIGUE [None]
  - HEPATITIS [None]
  - MONONUCLEOSIS HETEROPHILE TEST POSITIVE [None]
  - MUSCLE STRAIN [None]
  - PAIN [None]
  - PYREXIA [None]
  - RASH [None]
  - VIRAL INFECTION [None]
  - VOMITING [None]
